FAERS Safety Report 7008414-0 (Version None)
Quarter: 2010Q3

REPORT INFORMATION
  Report Type: 
  Country: None (occurrence: None)
  Receive Date: 20100922
  Receipt Date: 20100914
  Transmission Date: 20110219
  Serious: Yes (Hospitalization)
  Sender: FDA-Public Use
  Company Number: B0675574A

PATIENT
  Sex: Female
  Weight: 56 kg

DRUGS (2)
  1. TELZIR [Suspect]
     Indication: HIV INFECTION
     Route: 065
     Dates: start: 20100101
  2. EPIVIR [Concomitant]

REACTIONS (2)
  - DERMATITIS BULLOUS [None]
  - PHOTODERMATOSIS [None]
